FAERS Safety Report 7334658-4 (Version None)
Quarter: 2011Q1

REPORT INFORMATION
  Report Type: 
  Country: None (occurrence: None)
  Receive Date: 20110307
  Receipt Date: 20110302
  Transmission Date: 20110831
  Serious: Yes (Death, Hospitalization)
  Sender: FDA-Public Use
  Company Number: JP-SANOFI-AVENTIS-2010SA074796

PATIENT
  Age: 53 Year
  Sex: Male
  Weight: 55 kg

DRUGS (10)
  1. CALCIUM LEVOFOLINATE [Suspect]
     Indication: LARGE INTESTINE CARCINOMA
     Route: 041
     Dates: start: 20100915, end: 20100915
  2. 5-FU [Suspect]
     Indication: LARGE INTESTINE CARCINOMA
     Route: 040
     Dates: start: 20100915, end: 20100915
  3. AVASTIN [Suspect]
     Indication: LARGE INTESTINE CARCINOMA
     Route: 041
     Dates: start: 20100915, end: 20100915
  4. ELPLAT [Suspect]
     Indication: LARGE INTESTINE CARCINOMA
     Route: 041
     Dates: start: 20100915, end: 20100915
  5. ELPLAT [Suspect]
     Route: 041
     Dates: start: 20101115, end: 20101115
  6. CALCIUM LEVOFOLINATE [Suspect]
     Route: 041
     Dates: start: 20101115, end: 20101115
  7. 5-FU [Suspect]
     Route: 041
     Dates: start: 20101115, end: 20101116
  8. AVASTIN [Suspect]
     Route: 041
     Dates: start: 20101115, end: 20101115
  9. 5-FU [Suspect]
     Route: 041
     Dates: start: 20100915, end: 20100916
  10. 5-FU [Suspect]
     Route: 040
     Dates: start: 20101115, end: 20101115

REACTIONS (1)
  - CARDIAC FAILURE CONGESTIVE [None]
